FAERS Safety Report 13928605 (Version 1)
Quarter: 2017Q3

REPORT INFORMATION
  Report Type: Spontaneous
  Country: US (occurrence: None)
  Receive Date: 20170831
  Receipt Date: 20170831
  Transmission Date: 20171127
  Serious: No
  Sender: FDA-Public Use
  Company Number: None

PATIENT
  Age: 82 Year
  Sex: Female

DRUGS (1)
  1. STELARA [Suspect]
     Active Substance: USTEKINUMAB
     Indication: PSORIASIS
     Dosage: FREQUENCY - EVERY 4 MONTHS
     Route: 058
     Dates: start: 20161019

REACTIONS (1)
  - Nasal disorder [None]

NARRATIVE: CASE EVENT DATE: 20170715
